FAERS Safety Report 6214399-7 (Version None)
Quarter: 2009Q2

REPORT INFORMATION
  Report Type: 
  Country: None (occurrence: None)
  Receive Date: 20090604
  Receipt Date: 20090526
  Transmission Date: 20091009
  Serious: Yes (Other)
  Sender: FDA-Public Use
  Company Number: US-AMGEN-US347699

PATIENT
  Sex: Male

DRUGS (2)
  1. NPLATE [Suspect]
     Indication: IDIOPATHIC THROMBOCYTOPENIC PURPURA
     Route: 065
     Dates: start: 20081015, end: 20081105
  2. CORTICOSTEROIDS [Concomitant]
     Route: 065
     Dates: start: 20040501

REACTIONS (2)
  - BACK PAIN [None]
  - THROMBOCYTOPENIA [None]
